FAERS Safety Report 19985707 (Version 1)
Quarter: 2021Q4

REPORT INFORMATION
  Report Type: Report from Study
  Country: None (occurrence: US)
  Receive Date: 20211021
  Receipt Date: 20211021
  Transmission Date: 20220303
  Serious: Yes (Death, Other)
  Sender: FDA-Public Use
  Company Number: US-ABBVIE-21K-163-4130393-00

PATIENT
  Age: 82 Year
  Sex: Female

DRUGS (3)
  1. VENCLEXTA [Suspect]
     Active Substance: VENETOCLAX
     Indication: Product used for unknown indication
     Route: 048
  2. VENCLEXTA [Suspect]
     Active Substance: VENETOCLAX
     Route: 048
  3. VENCLEXTA [Suspect]
     Active Substance: VENETOCLAX
     Dosage: THEREAFTER WITH FOOD AND FULL GLASS OF WATER
     Route: 048

REACTIONS (5)
  - Death [Fatal]
  - Loss of consciousness [Unknown]
  - Pyrexia [Unknown]
  - Chills [Unknown]
  - Productive cough [Unknown]

NARRATIVE: CASE EVENT DATE: 20211008
